FAERS Safety Report 25246074 (Version 2)
Quarter: 2025Q2

REPORT INFORMATION
  Report Type: Spontaneous
  Country: NL (occurrence: NL)
  Receive Date: 20250428
  Receipt Date: 20250506
  Transmission Date: 20250717
  Serious: Yes (Other)
  Sender: PFIZER
  Company Number: NL-PFM-2025-01896

PATIENT
  Age: 60 Year
  Sex: Female

DRUGS (6)
  1. MEKTOVI [Suspect]
     Active Substance: BINIMETINIB
     Indication: Erdheim-Chester disease
     Dosage: 45 MG, BID (2/DAY)
     Route: 065
     Dates: start: 20250311, end: 20250418
  2. VEMURAFENIB [Suspect]
     Active Substance: VEMURAFENIB
     Indication: Erdheim-Chester disease
     Route: 048
     Dates: start: 20250311, end: 20250418
  3. LEVOTHYROXINE [Concomitant]
     Active Substance: LEVOTHYROXINE
     Indication: Hypothyroidism
     Dosage: 100 UG, QD (1/DAY)
     Route: 065
     Dates: start: 20250131
  4. ACETAMINOPHEN [Concomitant]
     Active Substance: ACETAMINOPHEN
     Indication: Pain
     Dosage: 1000 MG, TID (3/DAY)
     Route: 065
  5. PANTOPRAZOLE SODIUM [Concomitant]
     Active Substance: PANTOPRAZOLE SODIUM
     Indication: Duodenogastric reflux
     Dosage: 40 MG, QD (1/DAY)
     Route: 065
     Dates: start: 20250105
  6. OXYCODONE [Concomitant]
     Active Substance: OXYCODONE
     Indication: Pain
     Dosage: 5 MG, QD (1/DAY)
     Route: 065
     Dates: start: 20250105

REACTIONS (4)
  - Detachment of retinal pigment epithelium [Unknown]
  - Blister [Unknown]
  - Ejection fraction decreased [Unknown]
  - Off label use [Unknown]

NARRATIVE: CASE EVENT DATE: 20250311
